FAERS Safety Report 5751311-9 (Version None)
Quarter: 2008Q2

REPORT INFORMATION
  Report Type: 
  Country: None (occurrence: None)
  Receive Date: 20080528
  Receipt Date: 20080520
  Transmission Date: 20081010
  Serious: Yes (Other)
  Sender: FDA-Public Use
  Company Number: FR-PFIZER INC-2008042876

PATIENT
  Age: 35 Year
  Sex: Female

DRUGS (3)
  1. CEFPODOXIME PROXETIL [Suspect]
     Indication: SINUSITIS
     Route: 048
     Dates: start: 20080308, end: 20080311
  2. PREDNISONE [Suspect]
     Indication: SINUSITIS
     Route: 048
     Dates: start: 20080308, end: 20080312
  3. DEXTROMETHORPHAN HYDROBROMIDE [Suspect]
     Indication: COUGH
     Route: 048

REACTIONS (2)
  - IIIRD NERVE DISORDER [None]
  - VERTIGO [None]
